FAERS Safety Report 17517609 (Version 1)
Quarter: 2020Q1

REPORT INFORMATION
  Report Type: Spontaneous
  Country: US (occurrence: US)
  Receive Date: 20200309
  Receipt Date: 20200309
  Transmission Date: 20200409
  Serious: No
  Sender: FDA-Public Use
  Company Number: None

PATIENT
  Age: 61 Year
  Sex: Female
  Weight: 67.5 kg

DRUGS (7)
  1. OMEPRAZOLE 20 MG [Concomitant]
     Active Substance: OMEPRAZOLE
  2. LEVOTHYROXINE. [Concomitant]
     Active Substance: LEVOTHYROXINE
  3. VALSARTAN 160 MG DAILY [Concomitant]
  4. MYCOPHENOLATE 500 MG [Suspect]
     Active Substance: MYCOPHENOLATE MOFETIL
     Indication: SCLERODERMA
     Dosage: ?          QUANTITY:2 TABLET(S);?
     Route: 048
     Dates: start: 20191212, end: 20200129
  5. OFEV [Concomitant]
     Active Substance: NINTEDANIB
  6. SILDENAFIL. [Concomitant]
     Active Substance: SILDENAFIL
  7. IBUPROFEN. [Concomitant]
     Active Substance: IBUPROFEN

REACTIONS (4)
  - Therapy cessation [None]
  - Blood glucose decreased [None]
  - Hypersomnia [None]
  - Feeling abnormal [None]

NARRATIVE: CASE EVENT DATE: 20200127
